FAERS Safety Report 6815709-X (Version None)
Quarter: 2010Q3

REPORT INFORMATION
  Report Type: 
  Country: None (occurrence: None)
  Receive Date: 20100702
  Receipt Date: 20100624
  Transmission Date: 20110219
  Serious: Yes (Hospitalization, Other)
  Sender: FDA-Public Use
  Company Number: US-AMGEN-QUU418753

PATIENT
  Sex: Female
  Weight: 100 kg

DRUGS (6)
  1. NPLATE [Suspect]
     Indication: IDIOPATHIC THROMBOCYTOPENIC PURPURA
     Route: 058
     Dates: start: 20090904
  2. AMICAR [Concomitant]
     Dates: start: 20100216
  3. IMMU-G [Concomitant]
     Dates: start: 20100216, end: 20100406
  4. CELLCEPT [Concomitant]
     Dates: start: 20100216, end: 20100312
  5. TESSALON [Concomitant]
     Dates: start: 20100211
  6. SIROLIMUS [Concomitant]
     Dates: start: 20100615

REACTIONS (19)
  - ABDOMINAL DISCOMFORT [None]
  - BASOPHILIA [None]
  - BLOOD CULTURE POSITIVE [None]
  - COUGH [None]
  - DIARRHOEA [None]
  - DIVERTICULITIS [None]
  - EOSINOPHILIA [None]
  - FEBRILE NEUTROPENIA [None]
  - GINGIVAL BLEEDING [None]
  - HAEMOGLOBIN DECREASED [None]
  - MALNUTRITION [None]
  - MOOD ALTERED [None]
  - ORAL HERPES [None]
  - PERIODONTAL DISEASE [None]
  - PETECHIAE [None]
  - RECTAL HAEMORRHAGE [None]
  - THERAPEUTIC RESPONSE DECREASED [None]
  - UPPER RESPIRATORY TRACT INFECTION [None]
  - VOMITING [None]
